FAERS Safety Report 12231572 (Version 4)
Quarter: 2016Q4

REPORT INFORMATION
  Report Type: Spontaneous
  Country: US (occurrence: US)
  Receive Date: 20160401
  Receipt Date: 20161028
  Transmission Date: 20170207
  Serious: Yes (Disabling, Other)
  Sender: FDA-Public Use
  Company Number: US-009507513-1604USA000501

PATIENT
  Sex: Male
  Weight: 81.63 kg

DRUGS (2)
  1. PROPECIA [Suspect]
     Active Substance: FINASTERIDE
     Indication: ALOPECIA
     Dosage: 1 MG, QD
     Route: 048
     Dates: start: 1998, end: 2002
  2. PROPECIA [Suspect]
     Active Substance: FINASTERIDE
     Dosage: 1 MG, QD
     Route: 048
     Dates: start: 2006, end: 200808

REACTIONS (12)
  - Hormone level abnormal [Not Recovered/Not Resolved]
  - Asthenia [Unknown]
  - Brain injury [Not Recovered/Not Resolved]
  - Intervertebral disc protrusion [Unknown]
  - Muscle atrophy [Unknown]
  - Exercise tolerance decreased [Unknown]
  - Erectile dysfunction [Not Recovered/Not Resolved]
  - Sexual dysfunction [Not Recovered/Not Resolved]
  - Skin wrinkling [Unknown]
  - Body fat disorder [Unknown]
  - Loss of libido [Not Recovered/Not Resolved]
  - Penis disorder [Not Recovered/Not Resolved]

NARRATIVE: CASE EVENT DATE: 1999
